FAERS Safety Report 8538012-9 (Version None)
Quarter: 2012Q3

REPORT INFORMATION
  Report Type: 
  Country: None (occurrence: None)
  Receive Date: 20120725
  Receipt Date: 20120710
  Transmission Date: 20120928
  Serious: Yes (Other)
  Sender: FDA-Public Use
  Company Number: CHPA2012US015329

PATIENT
  Age: 74 Year
  Sex: Female

DRUGS (4)
  1. CODEINE SULFATE [Suspect]
     Indication: ALVEOLAR OSTEITIS
     Dosage: UNK, UNK
  2. EXCEDRIN (MIGRAINE) [Suspect]
     Dosage: 1 TO 2 DF, PRN
     Route: 048
     Dates: start: 19980101
  3. VITAMINS NOS [Concomitant]
     Dosage: UNK, UNK
  4. EXCEDRIN (MIGRAINE) [Suspect]
     Indication: MIGRAINE
     Dosage: 1 DF, PRN
     Route: 048
     Dates: start: 19980101

REACTIONS (5)
  - BLOOD CHOLESTEROL INCREASED [None]
  - VOMITING [None]
  - UNDERDOSE [None]
  - HYPERTENSION [None]
  - ALVEOLAR OSTEITIS [None]
